FAERS Safety Report 19873687 (Version 9)
Quarter: 2022Q3

REPORT INFORMATION
  Report Type: Spontaneous
  Country: US (occurrence: US)
  Receive Date: 20210923
  Receipt Date: 20220818
  Transmission Date: 20221026
  Serious: Yes (Hospitalization, Other)
  Sender: FDA-Public Use
  Company Number: US-PFIZER INC-202101206260

PATIENT
  Age: 67 Year
  Sex: Male
  Weight: 97.98 kg

DRUGS (23)
  1. DESVENLAFAXINE SUCCINATE [Suspect]
     Active Substance: DESVENLAFAXINE SUCCINATE
     Indication: Attention deficit hyperactivity disorder
     Dosage: UNK
  2. DESVENLAFAXINE SUCCINATE [Suspect]
     Active Substance: DESVENLAFAXINE SUCCINATE
     Indication: Depression
     Dosage: 100 MG, 1X/DAY
     Dates: start: 2018
  3. DESVENLAFAXINE SUCCINATE [Suspect]
     Active Substance: DESVENLAFAXINE SUCCINATE
     Indication: Discomfort
     Dosage: 100 MG, 1X/DAY
  4. DESVENLAFAXINE SUCCINATE [Suspect]
     Active Substance: DESVENLAFAXINE SUCCINATE
     Indication: Anxiety
     Dosage: 100 MG
     Dates: start: 201803
  5. BUSPIRONE HYDROCHLORIDE [Concomitant]
     Active Substance: BUSPIRONE HYDROCHLORIDE
     Indication: Anxiety
     Dosage: 10 MG, 2X/DAY
     Dates: start: 2020
  6. BUSPIRONE HYDROCHLORIDE [Concomitant]
     Active Substance: BUSPIRONE HYDROCHLORIDE
     Dosage: 10 MG, THREE TIMES A DAY
     Dates: start: 20210815
  7. AMIODARONE HYDROCHLORIDE [Concomitant]
     Active Substance: AMIODARONE HYDROCHLORIDE
     Indication: Arrhythmia
     Dosage: 200 MG, TWICE A DAY
     Dates: start: 20210717
  8. AMIODARONE HYDROCHLORIDE [Concomitant]
     Active Substance: AMIODARONE HYDROCHLORIDE
     Dosage: UNK
     Dates: start: 20210721, end: 20220115
  9. AMLODIPINE BESYLATE [Concomitant]
     Active Substance: AMLODIPINE BESYLATE
     Indication: Hypertension
     Dosage: 5 MG, ONCE A DAY
     Dates: start: 20210717
  10. ASPIRIN [Concomitant]
     Active Substance: ASPIRIN
     Indication: Blood disorder
     Dosage: 81 MG, DAILY (EVERY MORNING)
  11. CARVEDILOL [Concomitant]
     Active Substance: CARVEDILOL
     Indication: Hypertension
     Dosage: 3.125 MG, TWICE A DAY
     Dates: start: 20210717
  12. CARVEDILOL [Concomitant]
     Active Substance: CARVEDILOL
     Dosage: UNK
     Dates: start: 20210721, end: 20220115
  13. FLUTICASONE PROPIONATE [Concomitant]
     Active Substance: FLUTICASONE PROPIONATE
     Indication: Hypersensitivity
     Dosage: 50 UG, ONCE A DAY (50MCG/ACT1 SUSPENSION, NOSTRIL SPRAY ONCE A DAY)
     Route: 045
  14. FUROSEMIDE [Concomitant]
     Active Substance: FUROSEMIDE
     Indication: Diuretic therapy
     Dosage: 20 MG, ONCE A DAY
     Dates: start: 20210717
  15. LEVOTHYROXINE SODIUM [Concomitant]
     Active Substance: LEVOTHYROXINE SODIUM
     Indication: Hypothyroidism
     Dosage: 100 UG
  16. OMEPRAZOLE [Concomitant]
     Active Substance: OMEPRAZOLE
     Indication: Gastrointestinal disorder prophylaxis
     Dosage: 40 MG, ONCE A DAY (DELAYED RELEASE, 40MG TABLET, ONCE A DAY)
     Dates: start: 20210717
  17. ROSUVASTATIN CALCIUM [Concomitant]
     Active Substance: ROSUVASTATIN CALCIUM
     Indication: Blood cholesterol increased
     Dosage: 20 MG, ONCE A DAY
  18. ELIQUIS [Concomitant]
     Active Substance: APIXABAN
     Indication: Atrial fibrillation
     Dosage: 5 MG, TWICE A DAY
     Dates: start: 20210717
  19. CARBIDOPA [Concomitant]
     Active Substance: CARBIDOPA
     Dosage: 25 MG, 3X/DAY
  20. LEVODOPA [Concomitant]
     Active Substance: LEVODOPA
     Dosage: 100 MG, 3X/DAY
  21. PLAVIX [Concomitant]
     Active Substance: CLOPIDOGREL BISULFATE
     Dosage: 25 MG
  22. PANTOPRAZOLE [Concomitant]
     Active Substance: PANTOPRAZOLE
     Dosage: 40 MG
  23. CHOLECALCIFEROL [Concomitant]
     Active Substance: CHOLECALCIFEROL
     Dosage: 75 UG (25MCG 3 DOSE)

REACTIONS (13)
  - Nephrolithiasis [Recovered/Resolved]
  - Blood urine present [Recovered/Resolved]
  - Tension [Not Recovered/Not Resolved]
  - Irritability [Not Recovered/Not Resolved]
  - Apathy [Not Recovered/Not Resolved]
  - Myocardial infarction [Unknown]
  - Insomnia [Not Recovered/Not Resolved]
  - Parkinson^s disease [Unknown]
  - Drug ineffective [Unknown]
  - Muscle twitching [Unknown]
  - Cognitive disorder [Unknown]
  - Headache [Unknown]
  - Depression [Unknown]

NARRATIVE: CASE EVENT DATE: 20180101
